FAERS Safety Report 20004206 (Version 1)
Quarter: 2021Q4

REPORT INFORMATION
  Report Type: Report from Study
  Country: FR (occurrence: FR)
  Receive Date: 20211028
  Receipt Date: 20211028
  Transmission Date: 20220303
  Serious: Yes (Death)
  Sender: FDA-Public Use
  Company Number: FR-BAYER-2021A230733

PATIENT

DRUGS (27)
  1. EYLEA [Suspect]
     Active Substance: AFLIBERCEPT
     Indication: Diabetic retinal oedema
     Dosage: 50 MICROL, ONCE, RIGHT EYE (OD)
     Dates: start: 20200622, end: 20200622
  2. EYLEA [Suspect]
     Active Substance: AFLIBERCEPT
     Dosage: 50 MICROL, ONCE, RIGHT EYE (OD)
     Dates: start: 20200723, end: 20200723
  3. EYLEA [Suspect]
     Active Substance: AFLIBERCEPT
     Dosage: 50 MICROL, ONCE, RIGHT EYE (OD)
     Dates: start: 20200820, end: 20200820
  4. EYLEA [Suspect]
     Active Substance: AFLIBERCEPT
     Dosage: 50 MICROL, ONCE, RIGHT EYE (OD)
     Dates: start: 20200917, end: 20200917
  5. EYLEA [Suspect]
     Active Substance: AFLIBERCEPT
     Dosage: 50 MICROL, ONCE, RIGHT EYE (OD)
     Dates: start: 20201015, end: 20201015
  6. EYLEA [Suspect]
     Active Substance: AFLIBERCEPT
     Dosage: 50 MICROL, ONCE, RIGHT EYE (OD)
     Dates: start: 20210211, end: 20210211
  7. EYLEA [Suspect]
     Active Substance: AFLIBERCEPT
     Dosage: 50 MICROL,LEFT EYE (OS)
     Dates: start: 20200622, end: 20200622
  8. EYLEA [Suspect]
     Active Substance: AFLIBERCEPT
     Dosage: 50 MICROL, LEFT EYE (OS)
     Dates: start: 20200820, end: 20200820
  9. EYLEA [Suspect]
     Active Substance: AFLIBERCEPT
     Dosage: 50 MICROL, LEFT EYE (OS)
     Dates: start: 20200917, end: 20200917
  10. EYLEA [Suspect]
     Active Substance: AFLIBERCEPT
     Dosage: 50 MICROL, LETT EYE (OS)
     Dates: start: 20201015, end: 20201015
  11. INSULIN GLARGINE [Concomitant]
     Active Substance: INSULIN GLARGINE
     Indication: Product used for unknown indication
     Dosage: 40 IU, QD
  12. INSULINE LISPRO [Concomitant]
     Indication: Product used for unknown indication
     Dosage: UNK, ACCORDING TO THE GLYCEMIA
  13. FUROSEMIDE [Concomitant]
     Active Substance: FUROSEMIDE
     Indication: Product used for unknown indication
     Dosage: 40 MG, QD
  14. PANTOPRAZOLE [Concomitant]
     Active Substance: PANTOPRAZOLE
     Indication: Product used for unknown indication
     Dosage: 40 MG, BID
  15. CHOLECALCIFEROL [Concomitant]
     Active Substance: CHOLECALCIFEROL
     Indication: Product used for unknown indication
     Dosage: 1 DF, Q1MON
  16. NORMACOL [Concomitant]
     Active Substance: HERBALS\KARAYA GUM
     Indication: Product used for unknown indication
     Dosage: UNK
     Dates: start: 20201108
  17. PARAFFIN [Concomitant]
     Active Substance: PARAFFIN
     Indication: Product used for unknown indication
     Dosage: UNK
     Dates: start: 20201128
  18. MACROGOL + ELECTROLYTES SANDOZ [Concomitant]
     Indication: Product used for unknown indication
     Dosage: 3 DF, QD
     Dates: start: 20201128
  19. ARANESP [Concomitant]
     Active Substance: DARBEPOETIN ALFA
     Indication: Product used for unknown indication
     Dosage: 50 MICRO GRAM, EVERY 14 DAYS
     Dates: start: 202011
  20. FUROSEMIDE [Concomitant]
     Active Substance: FUROSEMIDE
     Indication: Product used for unknown indication
     Dosage: 80 MG, QD
     Dates: start: 202011, end: 202012
  21. FUROSEMIDE [Concomitant]
     Active Substance: FUROSEMIDE
     Dosage: 125 UNK
     Dates: start: 202011
  22. LOXOPROFEN SODIUM [Concomitant]
     Active Substance: LOXOPROFEN SODIUM
     Indication: Product used for unknown indication
     Dosage: UNK UNK, ONCE
     Dates: start: 20201116, end: 20201116
  23. FERINJECT [Concomitant]
     Active Substance: FERRIC CARBOXYMALTOSE
     Indication: Product used for unknown indication
     Dosage: UNK
     Dates: start: 20201116
  24. CARVEDILOL [Concomitant]
     Active Substance: CARVEDILOL
     Indication: Product used for unknown indication
     Dosage: 6.25 MG
  25. RAMIPRIL [Concomitant]
     Active Substance: RAMIPRIL
     Indication: Product used for unknown indication
     Dosage: 1.25 MG
     Dates: start: 202011
  26. INSULIN NOS [Concomitant]
     Active Substance: INSULIN NOS
     Indication: Product used for unknown indication
     Dosage: UNK
     Dates: start: 20201231, end: 20210111
  27. INSULIN NOS [Concomitant]
     Active Substance: INSULIN NOS
     Dosage: UNK
     Dates: start: 20201231, end: 20210111

REACTIONS (1)
  - Death [Fatal]

NARRATIVE: CASE EVENT DATE: 20210101
